FAERS Safety Report 8336231-8 (Version None)
Quarter: 2012Q2

REPORT INFORMATION
  Report Type: 
  Country: None (occurrence: None)
  Receive Date: 20120501
  Receipt Date: 20120427
  Transmission Date: 20120825
  Serious: Yes (Death, Hospitalization, Other)
  Sender: FDA-Public Use
  Company Number: ADR-2011-11813

PATIENT
  Age: 44 Year
  Sex: Female

DRUGS (2)
  1. LIORESAL [Suspect]
     Indication: MUSCLE SPASTICITY
     Dosage: SEE IMAGE
     Route: 037
  2. LIORESAL [Suspect]
     Indication: MULTIPLE SCLEROSIS
     Dosage: SEE IMAGE
     Route: 037

REACTIONS (27)
  - ANXIETY [None]
  - PUMP RESERVOIR ISSUE [None]
  - SECONDARY PROGRESSIVE MULTIPLE SCLEROSIS [None]
  - ASTHENIA [None]
  - MENTAL STATUS CHANGES [None]
  - COGNITIVE DISORDER [None]
  - DEVICE DAMAGE [None]
  - CONFUSIONAL STATE [None]
  - SUICIDAL IDEATION [None]
  - MENTAL DISORDER [None]
  - MEDICATION RESIDUE [None]
  - LOWER LIMB FRACTURE [None]
  - DISEASE RECURRENCE [None]
  - PAIN [None]
  - DEVICE POWER SOURCE ISSUE [None]
  - PNEUMONIA [None]
  - CACHEXIA [None]
  - DRUG INEFFECTIVE [None]
  - DISORIENTATION [None]
  - SUICIDE ATTEMPT [None]
  - BLOOD PRESSURE DECREASED [None]
  - URINARY TRACT INFECTION [None]
  - MUSCLE CONTRACTURE [None]
  - SPASTIC PARALYSIS [None]
  - DEVICE BREAKAGE [None]
  - GENERAL PHYSICAL HEALTH DETERIORATION [None]
  - FALL [None]
